FAERS Safety Report 15585501 (Version 1)
Quarter: 2018Q4

REPORT INFORMATION
  Report Type: Spontaneous
  Country: JP (occurrence: JP)
  Receive Date: 20181102
  Receipt Date: 20181102
  Transmission Date: 20190205
  Serious: Yes (Other)
  Sender: FDA-Public Use
  Company Number: JP-AKRON, INC.-2058363

PATIENT
  Age: 63 Year
  Sex: Female

DRUGS (1)
  1. ZIOPTAN [Suspect]
     Active Substance: TAFLUPROST
     Route: 047

REACTIONS (4)
  - Cataract operation [Unknown]
  - Macular oedema [Recovered/Resolved]
  - Macular oedema [Recovering/Resolving]
  - Condition aggravated [Recovering/Resolving]
